FAERS Safety Report 7625365-9 (Version None)
Quarter: 2011Q3

REPORT INFORMATION
  Report Type: 
  Country: None (occurrence: None)
  Receive Date: 20110721
  Receipt Date: 20110718
  Transmission Date: 20111222
  Serious: Yes (Other)
  Sender: FDA-Public Use
  Company Number: PT-BAYER-2011-062008

PATIENT
  Sex: Female

DRUGS (2)
  1. BETASERON [Suspect]
     Indication: MULTIPLE SCLEROSIS
     Route: 058
  2. CARBAMAZEPINE [Concomitant]
     Indication: EPILEPSY

REACTIONS (3)
  - PYREXIA [None]
  - ABASIA [None]
  - BONE PAIN [None]
